FAERS Safety Report 17239014 (Version 1)
Quarter: 2020Q1

REPORT INFORMATION
  Report Type: Spontaneous
  Country: FR (occurrence: FR)
  Receive Date: 20200106
  Receipt Date: 20200106
  Transmission Date: 20200409
  Serious: Yes (Hospitalization)
  Sender: FDA-Public Use
  Company Number: FR-MYLANLABS-2020M1001196

PATIENT
  Age: 58 Year
  Sex: Male
  Weight: 80 kg

DRUGS (4)
  1. CLOMIPRAMINE MYLAN [Interacting]
     Active Substance: CLOMIPRAMINE
     Indication: OBSESSIVE-COMPULSIVE DISORDER
     Dosage: 200 MILLIGRAM, QD
     Route: 048
     Dates: start: 201907
  2. RISPERIDONE MYLAN [Suspect]
     Active Substance: RISPERIDONE
     Indication: OBSESSIVE-COMPULSIVE DISORDER
     Dosage: 4 MILLIGRAM, QD
     Route: 048
     Dates: start: 201902, end: 20190722
  3. TERCIAN                            /00759302/ [Interacting]
     Active Substance: CYAMEMAZINE
     Indication: ANXIETY
     Dosage: SI BESOIN
     Route: 048
     Dates: end: 20190722
  4. ESCITALOPRAM ARROW [Interacting]
     Active Substance: ESCITALOPRAM OXALATE
     Indication: OBSESSIVE-COMPULSIVE DISORDER
     Dosage: 10 MILLIGRAM, QD
     Route: 048
     Dates: start: 20190715, end: 20190722

REACTIONS (4)
  - Drug interaction [Unknown]
  - Altered state of consciousness [Recovered/Resolved]
  - Extrapyramidal disorder [Recovered/Resolved]
  - Pyrexia [Recovered/Resolved]

NARRATIVE: CASE EVENT DATE: 20190722
